FAERS Safety Report 6407005-X (Version None)
Quarter: 2009Q4

REPORT INFORMATION
  Report Type: 
  Country: None (occurrence: None)
  Receive Date: 20091020
  Receipt Date: 20091007
  Transmission Date: 20100525
  Serious: No
  Sender: FDA-Public Use
  Company Number: PHHY2009JP38551

PATIENT

DRUGS (1)
  1. TEGRETOL [Suspect]
     Dosage: 125 MG, DAILY
     Route: 048

REACTIONS (1)
  - ELECTROCARDIOGRAM QRS COMPLEX PROLONGED [None]
